FAERS Safety Report 7757909-0 (Version None)
Quarter: 2011Q3

REPORT INFORMATION
  Report Type: 
  Country: None (occurrence: None)
  Receive Date: 20110918
  Receipt Date: 20110531
  Transmission Date: 20111222
  Serious: Yes (Other)
  Sender: FDA-Public Use
  Company Number: PHHY2011TR71034

PATIENT
  Age: 39 Year
  Sex: Male

DRUGS (4)
  1. LEVETIRACETAM [Suspect]
     Indication: CONVULSION
     Dosage: 1000 MG, DAILY
  2. OXCARBAZEPINE [Suspect]
     Indication: CONVULSION
     Dosage: 1200 MG, DAILY
  3. PREGABALIN [Suspect]
     Indication: CONVULSION
     Dosage: 300 MG, DAILY
  4. ZONISAMIDE [Suspect]
     Indication: CONVULSION
     Dosage: 400 MG, DAILY

REACTIONS (9)
  - STARING [None]
  - CARDIAC ARREST [None]
  - POSTURE ABNORMAL [None]
  - HYPOTONIA [None]
  - BRADYCARDIA [None]
  - LOSS OF CONSCIOUSNESS [None]
  - COMPLEX PARTIAL SEIZURES [None]
  - HYPERVENTILATION [None]
  - DIZZINESS [None]
